FAERS Safety Report 8055961-9 (Version None)
Quarter: 2012Q1

REPORT INFORMATION
  Report Type: 
  Country: None (occurrence: None)
  Receive Date: 20120119
  Receipt Date: 20111124
  Transmission Date: 20120608
  Serious: Yes (Death, Life-Threatening)
  Sender: FDA-Public Use
  Company Number: DE-ROCHE-1017108

PATIENT
  Sex: Female
  Weight: 66 kg

DRUGS (3)
  1. PRADAXA [Concomitant]
  2. ACTIVASE [Suspect]
     Indication: CEREBROVASCULAR ACCIDENT
     Route: 042
     Dates: start: 20111024, end: 20111024
  3. ACTIVASE [Suspect]
     Indication: CEREBRAL INFARCTION

REACTIONS (1)
  - CEREBRAL HAEMORRHAGE [None]
